FAERS Safety Report 5199320-5 (Version None)
Quarter: 2006Q4

REPORT INFORMATION
  Report Type: 
  Country: None (occurrence: None)
  Receive Date: 20061229
  Receipt Date: 20061219
  Transmission Date: 20070319
  Serious: Yes (Life-Threatening, Hospitalization)
  Sender: FDA-Public Use
  Company Number: 2006S1003754

PATIENT
  Age: 58 Year
  Sex: Male

DRUGS (7)
  1. REBIF [Suspect]
     Indication: MULTIPLE SCLEROSIS
     Dosage: 44 UG; TIW;
     Dates: start: 20051229, end: 20060301
  2. DOXEPIN HYDROCHLORIDE [Suspect]
     Indication: INSOMNIA
     Dosage: ORAL
     Route: 048
  3. LEXAPRO [Suspect]
     Dosage: 10 MG; QD; PO
     Route: 048
     Dates: start: 20040101
  4. AMBIEN (CON.) [Concomitant]
  5. DILANTIN /00017401/ (CON.) [Concomitant]
  6. DEPAKOTE (CON.) [Concomitant]
  7. DALMANE (CON.) [Concomitant]

REACTIONS (13)
  - COMPLEX PARTIAL SEIZURES [None]
  - CONDITION AGGRAVATED [None]
  - DEPRESSION [None]
  - DRUG INEFFECTIVE [None]
  - GRAND MAL CONVULSION [None]
  - INCOHERENT [None]
  - INCORRECT DOSE ADMINISTERED [None]
  - INSOMNIA [None]
  - MEMORY IMPAIRMENT [None]
  - MOBILITY DECREASED [None]
  - SPEECH DISORDER [None]
  - SUICIDAL IDEATION [None]
  - VIRAL INFECTION [None]
